FAERS Safety Report 13605332 (Version 1)
Quarter: 2017Q2

REPORT INFORMATION
  Report Type: Spontaneous
  Country: US (occurrence: US)
  Receive Date: 20170602
  Receipt Date: 20170602
  Transmission Date: 20170830
  Serious: No
  Sender: FDA-Public Use
  Company Number: US-NOVEN PHARMACEUTICALS, INC.-US2016002579

PATIENT

DRUGS (2)
  1. DAYTRANA [Suspect]
     Active Substance: METHYLPHENIDATE
     Indication: PRODUCT USED FOR UNKNOWN INDICATION
     Dosage: 30 MG, UNKNOWN
     Route: 062
     Dates: start: 2006, end: 201612
  2. TAMOXIFEN [Concomitant]
     Active Substance: TAMOXIFEN
     Indication: ANTIOESTROGEN THERAPY

REACTIONS (3)
  - Drug dose omission [Not Recovered/Not Resolved]
  - Off label use [Unknown]
  - Disturbance in attention [Unknown]

NARRATIVE: CASE EVENT DATE: 2006
